FAERS Safety Report 11272638 (Version 3)
Quarter: 2015Q3

REPORT INFORMATION
  Report Type: Report from Study
  Country: CA (occurrence: CA)
  Receive Date: 20150715
  Receipt Date: 20150825
  Transmission Date: 20151125
  Serious: Yes (Hospitalization)
  Sender: FDA-Public Use
  Company Number: CA-ABBVIE-15K-028-1425041-00

PATIENT
  Sex: Male

DRUGS (1)
  1. HUMIRA [Suspect]
     Active Substance: ADALIMUMAB
     Indication: CROHN^S DISEASE
     Route: 058
     Dates: start: 20080701

REACTIONS (4)
  - Vomiting [Unknown]
  - Intestinal stenosis [Unknown]
  - Hypophagia [Not Recovered/Not Resolved]
  - Intestinal obstruction [Unknown]
